FAERS Safety Report 21605165 (Version 1)
Quarter: 2022Q4

REPORT INFORMATION
  Report Type: Spontaneous
  Country: US (occurrence: None)
  Receive Date: 20221116
  Receipt Date: 20221116
  Transmission Date: 20230113
  Serious: Yes (Hospitalization)
  Sender: FDA-Public Use
  Company Number: None

PATIENT
  Age: 76 Year
  Sex: Male
  Weight: 74.25 kg

DRUGS (1)
  1. ZEPZELCA [Suspect]
     Active Substance: LURBINECTEDIN
     Indication: Lung neoplasm malignant
     Dosage: OTHER FREQUENCY : EVERY THREE WEEKS;?
     Route: 042
     Dates: start: 20221003, end: 20221103

REACTIONS (4)
  - Infusion related reaction [None]
  - Thermal burn [None]
  - Blister [None]
  - Tissue infiltration [None]

NARRATIVE: CASE EVENT DATE: 20221103
